FAERS Safety Report 21596777 (Version 2)
Quarter: 2022Q4

REPORT INFORMATION
  Report Type: Spontaneous
  Country: US (occurrence: US)
  Receive Date: 20221115
  Receipt Date: 20221115
  Transmission Date: 20230113
  Serious: No
  Sender: FDA-Public Use
  Company Number: US-AMNEAL PHARMACEUTICALS-2021-AMRX-04129

PATIENT
  Sex: Female

DRUGS (1)
  1. ISOTRETINOIN [Suspect]
     Active Substance: ISOTRETINOIN
     Indication: Product used for unknown indication
     Dosage: UNK
     Route: 065

REACTIONS (8)
  - Depression [Unknown]
  - Increased appetite [Unknown]
  - Weight increased [Unknown]
  - Somnolence [Unknown]
  - Self esteem decreased [Unknown]
  - Feeling of despair [Unknown]
  - Headache [Unknown]
  - Epistaxis [Unknown]
